FAERS Safety Report 5053843-8 (Version None)
Quarter: 2006Q3

REPORT INFORMATION
  Report Type: 
  Country: None (occurrence: None)
  Receive Date: 20060718
  Receipt Date: 20060712
  Transmission Date: 20061208
  Serious: Yes (Life-Threatening, Hospitalization)
  Sender: FDA-Public Use
  Company Number: JP-JPN-A200602605

PATIENT
  Age: 69 Year
  Sex: Female
  Weight: 40 kg

DRUGS (6)
  1. ZOVIRAX [Suspect]
     Indication: HERPES ZOSTER
     Dosage: 200MG PER DAY
     Route: 042
     Dates: start: 20060628, end: 20060704
  2. UNKNOWN DRUG [Concomitant]
     Route: 065
  3. ALFAROL [Concomitant]
     Dosage: .25MCG PER DAY
     Route: 048
  4. UNKNOWN DRUG [Concomitant]
     Route: 065
  5. AMLODIN [Concomitant]
     Dosage: 5MG PER DAY
     Route: 048
  6. DIOVAN [Concomitant]
     Dosage: 80MG PER DAY
     Route: 048

REACTIONS (2)
  - ENCEPHALOPATHY [None]
  - TUBULOINTERSTITIAL NEPHRITIS [None]
